FAERS Safety Report 15904119 (Version 1)
Quarter: 2019Q1

REPORT INFORMATION
  Report Type: Spontaneous
  Country: US (occurrence: US)
  Receive Date: 20190204
  Receipt Date: 20190204
  Transmission Date: 20190417
  Serious: No
  Sender: FDA-Public Use
  Company Number: US-AUROBINDO-AUR-APU-2018-020431

PATIENT
  Sex: Female

DRUGS (1)
  1. CEFDINIR FOR ORAL SUSPENSION 250 MG/5 ML [Suspect]
     Active Substance: CEFDINIR
     Indication: OROPHARYNGEAL PAIN
     Dosage: 6 MILLILITER, TWO TIMES A DAY
     Route: 048
     Dates: start: 20180402, end: 20180412

REACTIONS (1)
  - Product storage error [Unknown]
